FAERS Safety Report 8466120-X (Version None)
Quarter: 2012Q2

REPORT INFORMATION
  Report Type: 
  Country: None (occurrence: None)
  Receive Date: 20120626
  Receipt Date: 20120619
  Transmission Date: 20120825
  Serious: Yes (Other)
  Sender: FDA-Public Use
  Company Number: US-CELGENEUS-163-21880-12060421

PATIENT
  Sex: Female

DRUGS (1)
  1. REVLIMID [Suspect]
     Indication: MULTIPLE MYELOMA
     Dosage: 15 MILLIGRAM
     Route: 048
     Dates: start: 20090625, end: 20120602

REACTIONS (5)
  - DIARRHOEA [None]
  - LYMPHOEDEMA [None]
  - OSTEOPOROSIS [None]
  - RASH [None]
  - DRUG DOSE OMISSION [None]
